FAERS Safety Report 4821627-9 (Version None)
Quarter: 2005Q4

REPORT INFORMATION
  Report Type: 
  Country: None (occurrence: None)
  Receive Date: 20051107
  Receipt Date: 20051027
  Transmission Date: 20060501
  Serious: No
  Sender: FDA-Public Use
  Company Number: 2005UW16506

PATIENT
  Age: 41 Year
  Sex: Female

DRUGS (6)
  1. SEROQUEL [Suspect]
     Indication: BIPOLAR DISORDER
     Route: 048
  2. FENTANYL [Concomitant]
     Indication: PAIN
     Route: 061
  3. METHADONE [Concomitant]
     Indication: PAIN
  4. HYDROMORPHONE CONTIN [Concomitant]
     Indication: PAIN
  5. GABAPENTIN [Concomitant]
     Indication: PAIN
  6. LITHIUM [Concomitant]
     Indication: BIPOLAR DISORDER

REACTIONS (3)
  - DYSPHAGIA [None]
  - LARYNGOSPASM [None]
  - PSYCHIATRIC SYMPTOM [None]
